FAERS Safety Report 16789765 (Version 2)
Quarter: 2021Q1

REPORT INFORMATION
  Report Type: Spontaneous
  Country: US (occurrence: US)
  Receive Date: 20190910
  Receipt Date: 20210217
  Transmission Date: 20210419
  Serious: Yes (Hospitalization, Other)
  Sender: FDA-Public Use
  Company Number: US-TEVA-2019-US-1105406

PATIENT
  Age: 57 Year
  Sex: Female

DRUGS (3)
  1. CLONAZEPAM. [Suspect]
     Active Substance: CLONAZEPAM
     Indication: CHOREA
     Dosage: 1 MILLIGRAM DAILY;
     Route: 065
  2. VALPROIC ACID. [Suspect]
     Active Substance: VALPROIC ACID
     Indication: CHOREA
     Dosage: 750 MILLIGRAM DAILY;
     Route: 048
  3. LEVETIRACETAM. [Suspect]
     Active Substance: LEVETIRACETAM
     Indication: CHOREA
     Dosage: 500 MILLIGRAM DAILY;
     Route: 048

REACTIONS (10)
  - Thrombocytopenia [Recovering/Resolving]
  - Subdural haemorrhage [Unknown]
  - Contusion [Unknown]
  - Brain midline shift [Unknown]
  - Subdural haematoma [Unknown]
  - Drug ineffective [Unknown]
  - Anaemia [Unknown]
  - Ecchymosis [Unknown]
  - Mouth haemorrhage [Unknown]
  - Vaginal haemorrhage [Unknown]
